FAERS Safety Report 8601110-5 (Version None)
Quarter: 2012Q3

REPORT INFORMATION
  Report Type: 
  Country: None (occurrence: None)
  Receive Date: 20120817
  Receipt Date: 20120815
  Transmission Date: 20120928
  Serious: Yes (Hospitalization, Other)
  Sender: FDA-Public Use
  Company Number: PHHY2012AR060995

PATIENT
  Sex: Female

DRUGS (1)
  1. DIOVAN [Suspect]
     Indication: BLOOD PRESSURE
     Dosage: UNK UKN, UNK

REACTIONS (5)
  - ANAEMIA [None]
  - GAIT DISTURBANCE [None]
  - SPINAL DISORDER [None]
  - NERVE ROOT COMPRESSION [None]
  - PAIN IN EXTREMITY [None]
